FAERS Safety Report 5357687-9 (Version None)
Quarter: 2007Q2

REPORT INFORMATION
  Report Type: 
  Country: None (occurrence: None)
  Receive Date: 20070614
  Receipt Date: 20070608
  Transmission Date: 20071010
  Serious: Yes (Other)
  Sender: FDA-Public Use
  Company Number: SI-GENENTECH-242771

PATIENT
  Age: 62 Year
  Sex: Female

DRUGS (11)
  1. MABTHERA [Suspect]
     Indication: B-CELL LYMPHOMA
     Route: 042
  2. METHOTREXATE [Suspect]
     Indication: RHEUMATOID ARTHRITIS
     Dates: end: 20061201
  3. CYCLOPHOSPHAMIDE [Concomitant]
     Indication: B-CELL LYMPHOMA
  4. DOXORUBICIN HCL [Concomitant]
     Indication: B-CELL LYMPHOMA
  5. VINCRISTINE [Concomitant]
     Indication: B-CELL LYMPHOMA
  6. PREDNISOLONE [Concomitant]
     Indication: B-CELL LYMPHOMA
  7. PERINDOPRIL [Concomitant]
     Indication: HYPERTENSION
     Route: 048
  8. CALCIUM CHLORIDE [Concomitant]
     Indication: OSTEOPOROSIS
  9. ALPHA D3 [Concomitant]
     Indication: OSTEOPOROSIS
     Route: 048
  10. FOSAMAX [Concomitant]
     Indication: OSTEOPOROSIS
     Dosage: 70 MG, UNK
     Route: 048
  11. PANTOPRAZOLE SODIUM [Concomitant]
     Indication: GASTRIC DISORDER

REACTIONS (3)
  - ALVEOLITIS [None]
  - PULMONARY FIBROSIS [None]
  - RESPIRATORY FAILURE [None]
